FAERS Safety Report 9006030 (Version 1)
Quarter: 2013Q1

REPORT INFORMATION
  Report Type: Spontaneous
  Country: US (occurrence: US)
  Receive Date: 20130109
  Receipt Date: 20130109
  Transmission Date: 20140127
  Serious: Yes (Other)
  Sender: FDA-Public Use
  Company Number: CHPA2013US000691

PATIENT
  Age: 71 Year
  Sex: Female

DRUGS (4)
  1. PREVACID 24HR 15MG [Suspect]
     Indication: GASTROOESOPHAGEAL REFLUX DISEASE
     Dosage: 15 MG, QD
     Route: 048
  2. MAALOX [Suspect]
     Dosage: UNK, UNK
  3. UNSPECIFIED INGREDIENT [Concomitant]
  4. UNSPECIFIED INGREDIENT [Concomitant]
     Indication: GASTROOESOPHAGEAL REFLUX DISEASE

REACTIONS (7)
  - Weight decreased [Recovered/Resolved]
  - Oesophageal disorder [Recovered/Resolved]
  - Decreased appetite [Recovered/Resolved]
  - Chest pain [Recovered/Resolved]
  - Off label use [Unknown]
  - Incorrect drug administration duration [Unknown]
  - Inappropriate schedule of drug administration [Unknown]
